FAERS Safety Report 7352075-8 (Version None)
Quarter: 2011Q1

REPORT INFORMATION
  Report Type: 
  Country: None (occurrence: None)
  Receive Date: 20110315
  Receipt Date: 20110303
  Transmission Date: 20110831
  Serious: Yes (Other)
  Sender: FDA-Public Use
  Company Number: DE-SANOFI-AVENTIS-2011SA013347

PATIENT
  Sex: Male

DRUGS (2)
  1. OMEPRAZOLE [Interacting]
     Route: 065
  2. PLAVIX [Suspect]
     Route: 065

REACTIONS (2)
  - SYNCOPE [None]
  - DRUG INTERACTION [None]
